FAERS Safety Report 5140663-9 (Version None)
Quarter: 2006Q4

REPORT INFORMATION
  Report Type: 
  Country: None (occurrence: None)
  Receive Date: 20061025
  Receipt Date: 20061016
  Transmission Date: 20070319
  Serious: Yes (Hospitalization)
  Sender: FDA-Public Use
  Company Number: 2006116877

PATIENT
  Age: 47 Year
  Sex: Female

DRUGS (1)
  1. NORVASC [Suspect]
     Dosage: 5 MG X 12 (5 MG,ONCE), ORAL
     Route: 048
     Dates: start: 20060926

REACTIONS (1)
  - INTENTIONAL OVERDOSE [None]
